FAERS Safety Report 11149694 (Version 1)
Quarter: 2015Q2

REPORT INFORMATION
  Report Type: Spontaneous
  Country: US (occurrence: US)
  Receive Date: 20150529
  Receipt Date: 20150529
  Transmission Date: 20150821
  Serious: Yes (Congenital Anomaly)
  Sender: FDA-Public Use
  Company Number: US-ELI_LILLY_AND_COMPANY-US201503002561

PATIENT

DRUGS (6)
  1. PROZAC [Suspect]
     Active Substance: FLUOXETINE HYDROCHLORIDE
     Indication: PRODUCT USED FOR UNKNOWN INDICATION
     Dosage: 40 MG, QD
     Route: 064
  2. EPIVIR [Concomitant]
     Active Substance: LAMIVUDINE
     Route: 064
  3. VIRACEPT [Concomitant]
     Active Substance: NELFINAVIR MESYLATE
     Route: 064
  4. SUSTIVA [Concomitant]
     Active Substance: EFAVIRENZ
     Route: 064
  5. VIREAD [Concomitant]
     Active Substance: TENOFOVIR DISOPROXIL FUMARATE
     Route: 064
  6. COMBIVIR [Concomitant]
     Active Substance: LAMIVUDINE\ZIDOVUDINE
     Route: 064

REACTIONS (5)
  - Cardiac murmur [Unknown]
  - Cleft lip and palate [Unknown]
  - Foetal exposure during pregnancy [Recovered/Resolved]
  - Amniotic band syndrome [Unknown]
  - Dysmorphism [Unknown]
